FAERS Safety Report 4599666-5 (Version None)
Quarter: 2005Q1

REPORT INFORMATION
  Report Type: 
  Country: None (occurrence: None)
  Receive Date: 20050302
  Receipt Date: 20050225
  Transmission Date: 20050727
  Serious: Yes (Hospitalization, Other)
  Sender: FDA-Public Use
  Company Number: HQWYE396217FEB05

PATIENT
  Age: 37 Year
  Sex: Female

DRUGS (7)
  1. EUPANTOL (PANTOPRAZOLE, TABLET, DELAYED RELEASE) [Suspect]
     Indication: ABDOMINAL PAIN UPPER
     Dosage: 20 MG 1X PER 1 DAY
     Route: 048
     Dates: start: 20041213, end: 20050111
  2. EUPANTOL (PANTOPRAZOLE, TABLET, DELAYED RELEASE) [Suspect]
     Indication: PELVIC PAIN
     Dosage: 20 MG 1X PER 1 DAY
     Route: 048
     Dates: start: 20041213, end: 20050111
  3. ADVIL [Suspect]
     Dosage: 400 MG 3X PER 1 DAY
     Route: 048
     Dates: start: 20041230, end: 20050108
  4. AUGMENTIN [Suspect]
     Dosage: SEE IMAGE
     Route: 048
     Dates: start: 20041230, end: 20050108
  5. AUGMENTIN [Suspect]
     Dosage: SEE IMAGE
     Route: 048
     Dates: start: 20050117
  6. OROKEN (CEFIXIME, UNSPEC) [Suspect]
     Indication: PHARYNGOLARYNGEAL PAIN
     Dosage: SEE IMAGE
     Route: 048
     Dates: start: 20041213, end: 20041222
  7. OROKEN (CEFIXIME, UNSPEC) [Suspect]
     Indication: PHARYNGOLARYNGEAL PAIN
     Dosage: SEE IMAGE
     Route: 048
     Dates: start: 20041230

REACTIONS (4)
  - ECZEMA INFECTED [None]
  - FACE OEDEMA [None]
  - RASH MACULO-PAPULAR [None]
  - SKIN FISSURES [None]
